FAERS Safety Report 9039078 (Version 1)
Quarter: 2013Q1

REPORT INFORMATION
  Report Type: Spontaneous
  Country: US (occurrence: None)
  Receive Date: 20130122
  Receipt Date: 20130122
  Transmission Date: 20140127
  Serious: Yes (Other)
  Sender: FDA-Public Use
  Company Number: None

PATIENT
  Age: 63 Year
  Sex: Female
  Weight: 100.5 kg

DRUGS (5)
  1. ESTRADIOL [Suspect]
     Indication: OESTROGEN REPLACEMENT THERAPY
     Dosage: 0.5 MG DAILY SUBLINGUAL
     Route: 060
     Dates: start: 20121201, end: 20130103
  2. LEVOTHYROXINE [Concomitant]
  3. KLOR-CON [Concomitant]
  4. ZYRTEC [Concomitant]
  5. HCTZ [Concomitant]

REACTIONS (10)
  - Hair growth abnormal [None]
  - Oedema [None]
  - Acne [None]
  - Confusional state [None]
  - Blood glucose increased [None]
  - Blood pressure increased [None]
  - Abnormal behaviour [None]
  - Haemorrhage [None]
  - Condition aggravated [None]
  - Increased appetite [None]
